FAERS Safety Report 17295717 (Version 3)
Quarter: 2020Q2

REPORT INFORMATION
  Report Type: Report from Study
  Country: None (occurrence: US)
  Receive Date: 20200121
  Receipt Date: 20200407
  Transmission Date: 20200713
  Serious: Yes (Other)
  Sender: FDA-Public Use
  Company Number: US-ABBVIE-19K-163-3162460-00

PATIENT
  Age: 80 Year
  Sex: Female

DRUGS (3)
  1. IMBRUVICA [Suspect]
     Active Substance: IBRUTINIB
     Dosage: 420 MG, QD
     Route: 048
     Dates: start: 20190927
  2. IMBRUVICA [Suspect]
     Active Substance: IBRUTINIB
     Route: 048
     Dates: start: 20190926
  3. IMBRUVICA [Suspect]
     Active Substance: IBRUTINIB
     Indication: WALDENSTROM^S MACROGLOBULINAEMIA
     Dosage: 420 MG, QD
     Route: 048
     Dates: start: 20191002

REACTIONS (24)
  - Oral blood blister [Recovering/Resolving]
  - Fatigue [Recovering/Resolving]
  - Blood pressure increased [Unknown]
  - Atrial fibrillation [Unknown]
  - Mobility decreased [Not Recovered/Not Resolved]
  - Arthralgia [Not Recovered/Not Resolved]
  - Pain in extremity [Unknown]
  - Neuropathy peripheral [Not Recovered/Not Resolved]
  - Scratch [Unknown]
  - Gait disturbance [Unknown]
  - Von Willebrand^s disease [Unknown]
  - Throat irritation [Unknown]
  - Joint swelling [Not Recovered/Not Resolved]
  - Dizziness [Unknown]
  - Stomatitis [Recovering/Resolving]
  - Nasopharyngitis [Unknown]
  - Poor quality sleep [Unknown]
  - Cognitive disorder [Unknown]
  - Depression [Unknown]
  - Pacemaker syndrome [Unknown]
  - Respiratory tract congestion [Unknown]
  - Rash pruritic [Recovering/Resolving]
  - Blood immunoglobulin M increased [Unknown]
  - Anxiety [Unknown]

NARRATIVE: CASE EVENT DATE: 2019
